FAERS Safety Report 10152493 (Version 1)
Quarter: 2014Q2

REPORT INFORMATION
  Report Type: Spontaneous
  Country: US (occurrence: None)
  Receive Date: 20140502
  Receipt Date: 20140502
  Transmission Date: 20141212
  Serious: Yes (Life-Threatening, Hospitalization, Disabling, Other)
  Sender: FDA-Public Use
  Company Number: None

PATIENT
  Age: 34 Year
  Sex: Female

DRUGS (1)
  1. VYVANSE [Suspect]

REACTIONS (7)
  - Panic attack [None]
  - Drug withdrawal syndrome [None]
  - Confusional state [None]
  - Anxiety [None]
  - Tachyphrenia [None]
  - Hyperhidrosis [None]
  - Stress [None]
